FAERS Safety Report 4689608-6 (Version None)
Quarter: 2005Q2

REPORT INFORMATION
  Report Type: 
  Country: None (occurrence: None)
  Receive Date: 20050614
  Receipt Date: 20050607
  Transmission Date: 20051028
  Serious: Yes (Other)
  Sender: FDA-Public Use
  Company Number: US-JNJFOC-20050602443

PATIENT
  Age: 71 Year
  Sex: Male

DRUGS (3)
  1. RISPERDAL [Suspect]
     Indication: DEMENTIA
     Route: 049
  2. ARICEPT [Concomitant]
     Indication: DEMENTIA
     Route: 049
  3. ESCITALOPRAM OXALATE [Concomitant]
     Indication: DEPRESSION
     Route: 049

REACTIONS (2)
  - AGITATION [None]
  - PARKINSON'S DISEASE [None]
